FAERS Safety Report 16026313 (Version 1)
Quarter: 2019Q1

REPORT INFORMATION
  Report Type: Spontaneous
  Country: US (occurrence: US)
  Receive Date: 20190302
  Receipt Date: 20190302
  Transmission Date: 20190418
  Serious: No
  Sender: FDA-Public Use
  Company Number: US-NOVOPROD-626656

PATIENT
  Age: 79 Year
  Sex: Male
  Weight: 129.25 kg

DRUGS (3)
  1. VICTOZA [Suspect]
     Active Substance: LIRAGLUTIDE
     Dosage: DOSE DECREASED
     Route: 058
     Dates: start: 201809, end: 201809
  2. VICTOZA [Suspect]
     Active Substance: LIRAGLUTIDE
     Dosage: 0.6 MG, QD
     Route: 058
     Dates: start: 201809
  3. VICTOZA [Suspect]
     Active Substance: LIRAGLUTIDE
     Indication: TYPE 2 DIABETES MELLITUS
     Dosage: 1.8 MG, QD
     Route: 058
     Dates: start: 20180806, end: 201809

REACTIONS (3)
  - Constipation [Recovered/Resolved]
  - Weight increased [Recovered/Resolved]
  - Diarrhoea [Recovered/Resolved]

NARRATIVE: CASE EVENT DATE: 20180805
